FAERS Safety Report 6678247-3 (Version None)
Quarter: 2010Q2

REPORT INFORMATION
  Report Type: 
  Country: None (occurrence: None)
  Receive Date: 20100408
  Receipt Date: 20100408
  Transmission Date: 20101027
  Serious: No
  Sender: FDA-Public Use
  Company Number: None

PATIENT
  Age: 67 Year
  Sex: Male
  Weight: 108.5 kg

DRUGS (2)
  1. DOXYCYCLINE [Suspect]
     Indication: CELLULITIS
     Dosage: 100 MG BID PO
     Route: 048
     Dates: start: 20100305, end: 20100311
  2. CLINDAMYCIN [Suspect]
     Indication: CELLULITIS
     Dosage: 300 MG QID PO
     Route: 048
     Dates: start: 20100301, end: 20100311

REACTIONS (1)
  - RASH [None]
